FAERS Safety Report 8391272-X (Version None)
Quarter: 2012Q2

REPORT INFORMATION
  Report Type: 
  Country: None (occurrence: None)
  Receive Date: 20120529
  Receipt Date: 20110531
  Transmission Date: 20120825
  Serious: No
  Sender: FDA-Public Use
  Company Number: US-ABBOTT-11P-163-0730012-00

PATIENT
  Sex: Female
  Weight: 77.18 kg

DRUGS (7)
  1. AMLODIPINE BESYLATE [Concomitant]
     Indication: PRODUCT USED FOR UNKNOWN INDICATION
  2. ATENOLOL [Concomitant]
     Indication: HYPERTENSION
  3. FLECAINIDE ACETATE [Concomitant]
     Indication: ATRIAL FIBRILLATION
  4. WARFARIN SODIUM [Concomitant]
     Indication: PRODUCT USED FOR UNKNOWN INDICATION
  5. SIMVASTATIN [Concomitant]
     Indication: BLOOD CHOLESTEROL INCREASED
  6. ZEMPLAR [Suspect]
     Indication: HYPERPARATHYROIDISM
     Dates: start: 20110402
  7. FUROSEMIDE [Concomitant]
     Indication: PRODUCT USED FOR UNKNOWN INDICATION

REACTIONS (6)
  - BLOOD PRESSURE INCREASED [None]
  - SOMNOLENCE [None]
  - PYREXIA [None]
  - THIRST [None]
  - PALPITATIONS [None]
  - FATIGUE [None]
